FAERS Safety Report 10866052 (Version 1)
Quarter: 2015Q1

REPORT INFORMATION
  Report Type: Spontaneous
  Country: KR (occurrence: KR)
  Receive Date: 20150225
  Receipt Date: 20150225
  Transmission Date: 20150721
  Serious: Yes (Other)
  Sender: FDA-Public Use
  Company Number: KR-AMGEN-KORSP2015017206

PATIENT
  Age: 75 Year
  Sex: Male

DRUGS (1)
  1. GRAN [Suspect]
     Active Substance: FILGRASTIM
     Indication: LEUKAEMIA
     Dosage: 300 MUG, UNK
     Route: 042
     Dates: start: 20150201

REACTIONS (3)
  - Dyspnoea [Unknown]
  - Hyperhidrosis [Unknown]
  - Shock [Recovered/Resolved]

NARRATIVE: CASE EVENT DATE: 20150201
